FAERS Safety Report 5611623-6 (Version None)
Quarter: 2008Q1

REPORT INFORMATION
  Report Type: 
  Country: None (occurrence: None)
  Receive Date: 20080201
  Receipt Date: 20080124
  Transmission Date: 20080703
  Serious: Yes (Hospitalization, Other)
  Sender: FDA-Public Use
  Company Number: ES-ABBOTT-08P-144-0434878-00

PATIENT
  Sex: Male
  Weight: 9.48 kg

DRUGS (9)
  1. HUMIRA [Suspect]
     Indication: JUVENILE ARTHRITIS
     Route: 058
     Dates: start: 20071125, end: 20071206
  2. HUMIRA [Suspect]
     Route: 058
     Dates: start: 20070123, end: 20070306
  3. HUMIRA [Suspect]
     Route: 058
     Dates: start: 20070313, end: 20070724
  4. HUMIRA [Suspect]
     Route: 058
     Dates: start: 20070807, end: 20071113
  5. PREDNISONE TAB [Concomitant]
     Indication: JUVENILE ARTHRITIS
     Route: 048
  6. MYCOPHENOLATE MOFETIL [Concomitant]
     Indication: JUVENILE ARTHRITIS
     Route: 048
  7. AMLODIPINE BESYLATE [Concomitant]
     Indication: HYPERTENSION
     Route: 048
  8. BACTRIM [Concomitant]
     Indication: PROPHYLAXIS
     Route: 048
  9. MACROGOL [Concomitant]
     Indication: CONSTIPATION
     Dates: start: 20071228

REACTIONS (20)
  - ANTINUCLEAR ANTIBODY POSITIVE [None]
  - B-LYMPHOCYTE COUNT DECREASED [None]
  - BONE MARROW FAILURE [None]
  - CONSTIPATION [None]
  - CYTOMEGALOVIRUS INFECTION [None]
  - DYSPNOEA [None]
  - GENERAL PHYSICAL HEALTH DETERIORATION [None]
  - HAEMATURIA [None]
  - HEPATOSPLENOMEGALY [None]
  - HISTIOCYTOSIS HAEMATOPHAGIC [None]
  - JUVENILE ARTHRITIS [None]
  - MESANGIOPROLIFERATIVE GLOMERULONEPHRITIS [None]
  - PERIRENAL HAEMATOMA [None]
  - PLATELET COUNT INCREASED [None]
  - PLEURAL EFFUSION [None]
  - PLEUROPERICARDITIS [None]
  - RESPIRATORY TRACT INFECTION VIRAL [None]
  - SERUM FERRITIN INCREASED [None]
  - THROMBOCYTHAEMIA [None]
  - UNEVALUABLE EVENT [None]
